FAERS Safety Report 4367662-9 (Version None)
Quarter: 2004Q2

REPORT INFORMATION
  Report Type: 
  Country: None (occurrence: None)
  Receive Date: 20040601
  Receipt Date: 20040524
  Transmission Date: 20050107
  Serious: Yes (Death, Other)
  Sender: FDA-Public Use
  Company Number: CA-GLAXOSMITHKLINE-A0512018A

PATIENT
  Sex: Male

DRUGS (1)
  1. PAXIL [Suspect]
     Indication: DEPRESSION
     Route: 048

REACTIONS (4)
  - COMPLETED SUICIDE [None]
  - DEPRESSION [None]
  - INSOMNIA [None]
  - LISTLESS [None]
